FAERS Safety Report 9224301 (Version 2)
Quarter: 2013Q3

REPORT INFORMATION
  Report Type: Spontaneous
  Country: US (occurrence: None)
  Receive Date: 20120914
  Receipt Date: 20130916
  Transmission Date: 20140515
  Serious: Yes (Other)
  Sender: FDA-Public Use
  Company Number: JPI-P-022346

PATIENT
  Age: 26 Year
  Sex: Male
  Weight: 133.81 kg

DRUGS (7)
  1. XYREM (500 MILLIGRAM/MILLILITERS, SOLUTION) (SODIUM OXYBATE) [Suspect]
     Indication: NARCOLEPSY
     Dosage: UNKNOWN, ORAL
     Route: 048
     Dates: start: 201101
  2. CIPROFLOXACIN [Suspect]
     Indication: DIARRHOEA
     Dosage: 1000 MG (500 MG, 2 IN 1 D)
     Route: 048
     Dates: start: 20120619, end: 20120629
  3. MODAFINIL [Concomitant]
  4. VITAMIN D [Concomitant]
  5. MULTIVITAMIN [Concomitant]
  6. VILAZODONE HYDROCHLORIDE [Concomitant]
  7. ESCITALOPRAM OXALATE [Concomitant]

REACTIONS (7)
  - Blood pressure increased [None]
  - Diarrhoea infectious [None]
  - Weight decreased [None]
  - Abdominal discomfort [None]
  - Somnolence [None]
  - Fatigue [None]
  - Nausea [None]
